FAERS Safety Report 18627645 (Version 1)
Quarter: 2020Q4

REPORT INFORMATION
  Report Type: Spontaneous
  Country: US (occurrence: US)
  Receive Date: 20201217
  Receipt Date: 20201217
  Transmission Date: 20210114
  Serious: No
  Sender: FDA-Public Use
  Company Number: US-CURIUM-199700082

PATIENT
  Sex: Female

DRUGS (1)
  1. TECHNESCAN MAG3 [Suspect]
     Active Substance: TECHNETIUM TC-99M TIATIDE

REACTIONS (4)
  - Feeling cold [Unknown]
  - Tremor [Unknown]
  - Blood pressure decreased [Unknown]
  - Burning sensation [Unknown]
